FAERS Safety Report 25779506 (Version 1)
Quarter: 2025Q3

REPORT INFORMATION
  Report Type: Spontaneous
  Country: GB (occurrence: GB)
  Receive Date: 20250909
  Receipt Date: 20250909
  Transmission Date: 20251021
  Serious: Yes (Death, Other)
  Sender: CIPLA
  Company Number: GB-MHRA-MED-202503191553589570-WBLTK

PATIENT

DRUGS (3)
  1. FINASTERIDE [Suspect]
     Active Substance: FINASTERIDE
     Indication: Alopecia
     Dosage: 1 MILLIGRAM, QD (CAPSULES, SOFT)
     Route: 048
     Dates: start: 20240401
  2. MINOXIDIL [Suspect]
     Active Substance: MINOXIDIL
     Indication: Alopecia
     Dosage: 2.5 MILLIGRAM, QD
     Route: 048
     Dates: start: 20240401
  3. BIOTIN [Suspect]
     Active Substance: BIOTIN
     Indication: Alopecia
     Dosage: 10 MILLIGRAM, QD
     Route: 048
     Dates: start: 20240401

REACTIONS (3)
  - Completed suicide [Fatal]
  - Carditis [Unknown]
  - Tonsillitis [Unknown]

NARRATIVE: CASE EVENT DATE: 20240701
